FAERS Safety Report 7990763-0 (Version None)
Quarter: 2011Q4

REPORT INFORMATION
  Report Type: 
  Country: None (occurrence: None)
  Receive Date: 20111219
  Receipt Date: 20111219
  Transmission Date: 20120403
  Serious: No
  Sender: FDA-Public Use
  Company Number: None

PATIENT
  Age: 70 Year
  Sex: Female
  Weight: 61.688 kg

DRUGS (1)
  1. LISINOPRIL AND HYDROCHLOROTHIAZIDE [Suspect]
     Dosage: 1
     Route: 048

REACTIONS (4)
  - URTICARIA [None]
  - EYELID OEDEMA [None]
  - PRODUCT SUBSTITUTION ISSUE [None]
  - LIP SWELLING [None]
